FAERS Safety Report 4562043-7 (Version None)
Quarter: 2005Q1

REPORT INFORMATION
  Report Type: 
  Country: None (occurrence: None)
  Receive Date: 20050125
  Receipt Date: 20050114
  Transmission Date: 20050727
  Serious: Yes (Other)
  Sender: FDA-Public Use
  Company Number: 21704

PATIENT
  Age: 83 Year
  Sex: Female

DRUGS (6)
  1. NIASPAN [Suspect]
     Indication: BLOOD CHOLESTEROL INCREASED
  2. OSCAL 500-D [Suspect]
     Indication: MINERAL SUPPLEMENTATION
     Dates: start: 19860101
  3. CITRACAL [Concomitant]
  4. POTASSIUM CHLORIDE [Concomitant]
  5. VITAMIN E [Concomitant]
  6. ASPIRIN [Concomitant]

REACTIONS (1)
  - VISUAL ACUITY REDUCED [None]
